FAERS Safety Report 4308926-4 (Version None)
Quarter: 2004Q1

REPORT INFORMATION
  Report Type: 
  Country: None (occurrence: None)
  Receive Date: 20040227
  Receipt Date: 20040220
  Transmission Date: 20041129
  Serious: Yes (Hospitalization)
  Sender: FDA-Public Use
  Company Number: FR-JNJFOC-20040205108

PATIENT
  Age: 54 Year
  Sex: Female
  Weight: 50 kg

DRUGS (9)
  1. REMICADE [Suspect]
     Indication: CROHN'S DISEASE
     Dosage: 250 MG, INTRAVENOUS
     Route: 042
  2. LACTOBACILLUS (LACTOBACILLUS ACIDOPHILUS) [Concomitant]
  3. MORPRAL (MORPHALGIN) [Concomitant]
  4. AZATHIOPRINE [Concomitant]
  5. LOPERAMIDE (LOPERAMIDE HYDROCHLORIDE) [Concomitant]
  6. ALVITYL (ALVITYL) [Concomitant]
  7. ALDACTONE [Concomitant]
  8. PROGESTERONE [Concomitant]
  9. RUBOZINC (ZINC GLUCONATE) [Concomitant]

REACTIONS (7)
  - CHILLS [None]
  - GAMMA-GLUTAMYLTRANSFERASE INCREASED [None]
  - HEPATIC ENZYME INCREASED [None]
  - INFLUENZA LIKE ILLNESS [None]
  - PAIN [None]
  - PYREXIA [None]
  - VOMITING [None]
